FAERS Safety Report 19953219 (Version 1)
Quarter: 2021Q4

REPORT INFORMATION
  Report Type: Spontaneous
  Country: CA (occurrence: CA)
  Receive Date: 20211014
  Receipt Date: 20211014
  Transmission Date: 20220303
  Serious: Yes (Other)
  Sender: FDA-Public Use
  Company Number: CA-ROCHE-2932333

PATIENT
  Age: 70 Year
  Sex: Male

DRUGS (21)
  1. RITUXIMAB [Suspect]
     Active Substance: RITUXIMAB
     Indication: Rheumatoid arthritis
     Route: 041
  2. SENOKOT [Concomitant]
     Active Substance: SENNOSIDES
  3. RIFAMPIN [Concomitant]
     Active Substance: RIFAMPIN
  4. OXYCODONE [Concomitant]
     Active Substance: OXYCODONE
  5. OMEPRAZOLE [Concomitant]
     Active Substance: OMEPRAZOLE
  6. NAPROXEN [Concomitant]
     Active Substance: NAPROXEN
  7. METOPROLOL [Concomitant]
     Active Substance: METOPROLOL
  8. METHYLPREDNISOLONE [Concomitant]
     Active Substance: METHYLPREDNISOLONE
     Indication: Premedication
     Route: 042
  9. METHOTREXATE [Concomitant]
     Active Substance: METHOTREXATE
     Route: 048
  10. POLYETHYLENE GLYCOL 400\PROPYLENE GLYCOL [Concomitant]
     Active Substance: POLYETHYLENE GLYCOL 400\PROPYLENE GLYCOL
  11. ACETAMINOPHEN [Concomitant]
     Active Substance: ACETAMINOPHEN
     Indication: Premedication
     Route: 048
  12. ALFACALCIDOL [Concomitant]
     Active Substance: ALFACALCIDOL
  13. AMLODIPINE [Concomitant]
     Active Substance: AMLODIPINE BESYLATE
  14. SULFAMETHOXAZOLE\TRIMETHOPRIM [Concomitant]
     Active Substance: SULFAMETHOXAZOLE\TRIMETHOPRIM
  15. ASPIRIN [Concomitant]
     Active Substance: ASPIRIN
  16. ATORVASTATIN [Concomitant]
     Active Substance: ATORVASTATIN
     Route: 065
  17. CHOLECALCIFEROL [Concomitant]
     Active Substance: CHOLECALCIFEROL
  18. DIPHENHYDRAMINE [Concomitant]
     Active Substance: DIPHENHYDRAMINE
     Indication: Premedication
     Route: 048
  19. DOCUSATE SODIUM [Concomitant]
     Active Substance: DOCUSATE SODIUM
  20. FOLIC ACID [Concomitant]
     Active Substance: FOLIC ACID
  21. LASIX [Concomitant]
     Active Substance: FUROSEMIDE

REACTIONS (1)
  - COVID-19 [Unknown]
